FAERS Safety Report 17049207 (Version 1)
Quarter: 2019Q4

REPORT INFORMATION
  Report Type: Spontaneous
  Country: PL (occurrence: PL)
  Receive Date: 20191119
  Receipt Date: 20191119
  Transmission Date: 20200122
  Serious: Yes (Death, Other)
  Sender: FDA-Public Use
  Company Number: NVSC2019PL039902

PATIENT
  Age: 21 Year
  Sex: Female

DRUGS (1)
  1. PAZOPANIB [Suspect]
     Active Substance: PAZOPANIB
     Indication: PRODUCT USED FOR UNKNOWN INDICATION
     Dosage: UNK
     Route: 065

REACTIONS (7)
  - Neoplasm progression [Unknown]
  - Dyspnoea [Unknown]
  - General physical condition abnormal [Unknown]
  - Death [Fatal]
  - General physical health deterioration [Unknown]
  - Disease progression [Unknown]
  - Pain [Unknown]

NARRATIVE: CASE EVENT DATE: 201505
